FAERS Safety Report 6052630-1 (Version None)
Quarter: 2009Q1

REPORT INFORMATION
  Report Type: 
  Country: None (occurrence: None)
  Receive Date: 20090127
  Receipt Date: 20090116
  Transmission Date: 20090719
  Serious: Yes (Hospitalization)
  Sender: FDA-Public Use
  Company Number: FR-JNJFOC-20090103932

PATIENT
  Age: 85 Year
  Sex: Female

DRUGS (9)
  1. DOXORUBICIN HCL [Suspect]
     Route: 042
  2. DOXORUBICIN HCL [Suspect]
     Route: 042
  3. DOXORUBICIN HCL [Suspect]
     Indication: BREAST CANCER
     Route: 042
  4. METHYLPREDNISOLONE [Suspect]
     Route: 042
  5. METHYLPREDNISOLONE [Suspect]
     Route: 042
  6. METHYLPREDNISOLONE [Suspect]
     Indication: BREAST CANCER
     Route: 042
  7. GRANISETRON [Suspect]
     Route: 042
  8. GRANISETRON [Suspect]
     Route: 042
  9. GRANISETRON [Suspect]
     Indication: BREAST CANCER
     Route: 042

REACTIONS (4)
  - DERMATITIS [None]
  - PAIN [None]
  - PALMAR-PLANTAR ERYTHRODYSAESTHESIA SYNDROME [None]
  - RASH MACULO-PAPULAR [None]
